FAERS Safety Report 5455139-9 (Version None)
Quarter: 2007Q3

REPORT INFORMATION
  Report Type: 
  Country: None (occurrence: None)
  Receive Date: 20070914
  Receipt Date: 20070831
  Transmission Date: 20080115
  Serious: Yes (Hospitalization)
  Sender: FDA-Public Use
  Company Number: GXKR2007IT07602

PATIENT
  Age: 74 Year
  Sex: Male
  Weight: 60 kg

DRUGS (2)
  1. CIPROFLOXACIN [Suspect]
     Indication: DIARRHOEA
     Dosage: 750 MG, BID
  2. ANGIOTENSIN CONVERTING ENZYME BLOCKERS(NO INGREDIENTS/SUBSTANCES) [Suspect]

REACTIONS (3)
  - KIDNEY FIBROSIS [None]
  - NEPHROPATHY [None]
  - RENAL FAILURE ACUTE [None]
